FAERS Safety Report 5553408-5 (Version None)
Quarter: 2007Q4

REPORT INFORMATION
  Report Type: 
  Country: None (occurrence: None)
  Receive Date: 20071213
  Receipt Date: 20071206
  Transmission Date: 20080405
  Serious: Yes (Other)
  Sender: FDA-Public Use
  Company Number: FR-BRISTOL-MYERS SQUIBB COMPANY-14013031

PATIENT
  Age: 39 Year
  Sex: Male

DRUGS (3)
  1. LYSODREN [Suspect]
     Indication: ADRENOCORTICAL CARCINOMA
     Dates: start: 20070801
  2. HYDROCORTISONE [Concomitant]
  3. FLUDROCORTISONE ACETATE [Concomitant]

REACTIONS (4)
  - ASTHENIA [None]
  - NAUSEA [None]
  - SPEECH DISORDER [None]
  - VOMITING [None]
